FAERS Safety Report 9292821 (Version 3)
Quarter: 2013Q3

REPORT INFORMATION
  Report Type: Spontaneous
  Country: US (occurrence: None)
  Receive Date: 20130513
  Receipt Date: 20130731
  Transmission Date: 20140515
  Serious: Yes (Disabling)
  Sender: FDA-Public Use
  Company Number: ACO_35844_2013

PATIENT
  Age: 64 Year
  Sex: Male
  Weight: 63.5 kg

DRUGS (2)
  1. AMPYRA [Suspect]
     Indication: GAIT DISTURBANCE
     Dates: start: 201109, end: 20120914
  2. AMPYRA [Suspect]
     Indication: MULTIPLE SCLEROSIS
     Dates: start: 201109, end: 20120914

REACTIONS (3)
  - Cerebrovascular accident [None]
  - Hypertension [None]
  - Pneumonia [None]
